FAERS Safety Report 12342215 (Version 1)
Quarter: 2016Q2

REPORT INFORMATION
  Report Type: Spontaneous
  Country: SE (occurrence: SE)
  Receive Date: 20160506
  Receipt Date: 20160506
  Transmission Date: 20160815
  Serious: Yes (Other)
  Sender: FDA-Public Use
  Company Number: SE-BAYER-2016-082271

PATIENT
  Age: 19 Year
  Sex: Female

DRUGS (1)
  1. LEVONORGESTREL IUS [UNKNOWN] [Suspect]
     Active Substance: LEVONORGESTREL
     Indication: CONTRACEPTION
     Route: 015

REACTIONS (4)
  - Prolonged pregnancy [None]
  - Drug ineffective [None]
  - Amenorrhoea [None]
  - Pregnancy with contraceptive device [None]
